FAERS Safety Report 8275236-2 (Version None)
Quarter: 2012Q2

REPORT INFORMATION
  Report Type: 
  Country: None (occurrence: None)
  Receive Date: 20120411
  Receipt Date: 20120331
  Transmission Date: 20120825
  Serious: No
  Sender: FDA-Public Use
  Company Number: US-BAYER-2012-033356

PATIENT

DRUGS (3)
  1. ALEVE (CAPLET) [Suspect]
     Indication: HEADACHE
     Route: 048
  2. ALEVE (CAPLET) [Suspect]
     Indication: MUSCULOSKELETAL STIFFNESS
  3. ADVIL COLD AND SINUS [Concomitant]
     Dosage: UNK

REACTIONS (2)
  - HEADACHE [None]
  - MUSCULOSKELETAL STIFFNESS [None]
